FAERS Safety Report 5801183-9 (Version None)
Quarter: 2008Q3

REPORT INFORMATION
  Report Type: 
  Country: None (occurrence: None)
  Receive Date: 20080707
  Receipt Date: 20080625
  Transmission Date: 20090109
  Serious: Yes (Hospitalization)
  Sender: FDA-Public Use
  Company Number: NZ-ELI_LILLY_AND_COMPANY-NZ200806005716

PATIENT
  Age: 38 Year
  Sex: Male

DRUGS (3)
  1. ZYPREXA [Suspect]
     Indication: BIPOLAR DISORDER
     Dosage: 15 MG, DAILY (1/D)
     Dates: start: 20080613, end: 20080613
  2. LITHIUM CARBONATE [Concomitant]
     Dosage: 750 MG, UNK
  3. CITALOPRAM HYDROBROMIDE [Concomitant]

REACTIONS (1)
  - PNEUMONIA [None]
